FAERS Safety Report 15600482 (Version 1)
Quarter: 2018Q4

REPORT INFORMATION
  Report Type: Spontaneous
  Country: FR (occurrence: FR)
  Receive Date: 20181109
  Receipt Date: 20181109
  Transmission Date: 20190205
  Serious: Yes (Hospitalization, Other)
  Sender: FDA-Public Use
  Company Number: FR-ACCORD-091076

PATIENT
  Age: 46 Year
  Sex: Female
  Weight: 88 kg

DRUGS (5)
  1. TASIGNA [Suspect]
     Active Substance: NILOTINIB
     Indication: PRODUCT USED FOR UNKNOWN INDICATION
     Dosage: 400 MG, 2X/DAY
     Dates: start: 20131128, end: 20131204
  2. FOLINIC ACID [Concomitant]
     Active Substance: LEUCOVORIN
     Dosage: 25 MG, 4X/DAY FROM H36 OF METHOTREXATE TO BE ADJUSTED ACCORDING TO BLOOD METHOTREXATE CONCENTRATIONS
     Dates: start: 201311
  3. DEXAMETHASONE/TOBRAMYCIN [Concomitant]
     Dosage: 1 GTT, 4X/DAY
     Route: 047
  4. CYTARABINE EBEWE [Suspect]
     Active Substance: CYTARABINE
     Indication: ACUTE LYMPHOCYTIC LEUKAEMIA
     Dosage: 5700 MG, 2X/DAY ON DAY 2 AND DAY 3
     Route: 042
     Dates: start: 20131128, end: 20131130
  5. METHOTREXATE. [Suspect]
     Active Substance: METHOTREXATE
     Indication: ACUTE LYMPHOCYTIC LEUKAEMIA
     Dates: start: 20131128

REACTIONS (7)
  - Pain in extremity [Recovered/Resolved]
  - Neuropathy peripheral [Recovering/Resolving]
  - Encephalitis [Recovered/Resolved]
  - Pyrexia [Recovered/Resolved]
  - Gait disturbance [Recovering/Resolving]
  - Febrile bone marrow aplasia [Recovered/Resolved]
  - Renal failure [Recovered/Resolved]

NARRATIVE: CASE EVENT DATE: 20131130
